FAERS Safety Report 6522456-0 (Version None)
Quarter: 2009Q4

REPORT INFORMATION
  Report Type: 
  Country: None (occurrence: None)
  Receive Date: 20091229
  Receipt Date: 20091229
  Transmission Date: 20100525
  Serious: Yes (Life-Threatening, Hospitalization)
  Sender: FDA-Public Use
  Company Number: None

PATIENT
  Age: 27 Year
  Sex: Male
  Weight: 82.1011 kg

DRUGS (2)
  1. MAXAQUIN [Suspect]
  2. LEVAQUIN [Suspect]

REACTIONS (1)
  - ANAPHYLACTIC SHOCK [None]
